FAERS Safety Report 17109971 (Version 2)
Quarter: 2020Q1

REPORT INFORMATION
  Report Type: Report from Study
  Country: DE (occurrence: DE)
  Receive Date: 20191204
  Receipt Date: 20200320
  Transmission Date: 20200409
  Serious: Yes (Hospitalization)
  Sender: FDA-Public Use
  Company Number: DE-SUN PHARMACEUTICAL INDUSTRIES LTD-2019RR-229712

PATIENT
  Sex: Male
  Weight: 98 kg

DRUGS (1)
  1. ILUMETRI 100 MG, INJEKTIONSL?SUNG [Suspect]
     Active Substance: TILDRAKIZUMAB
     Indication: PSORIASIS
     Dosage: 100 MILLIGRAMS, UNK
     Route: 058
     Dates: start: 20190228

REACTIONS (4)
  - Pneumonia [Recovered/Resolved]
  - Musculoskeletal pain [Recovering/Resolving]
  - Tendon rupture [Not Recovered/Not Resolved]
  - Osteoarthritis [Recovered/Resolved]
